FAERS Safety Report 6022149-2 (Version None)
Quarter: 2008Q4

REPORT INFORMATION
  Report Type: 
  Country: None (occurrence: None)
  Receive Date: 20081223
  Receipt Date: 20081212
  Transmission Date: 20090506
  Serious: Yes (Death, Life-Threatening)
  Sender: FDA-Public Use
  Company Number: DSA_32940_2008

PATIENT
  Sex: Female

DRUGS (5)
  1. MONO-TILDIEM  (NOT SPECIFIED) [Suspect]
     Indication: DRUG USE FOR UNKNOWN INDICATION
     Dosage: 1 DF QD ORAL
     Route: 048
     Dates: end: 20081022
  2. LASIX [Suspect]
     Indication: DRUG USE FOR UNKNOWN INDICATION
     Dosage: 40 M G QD ORAL
     Route: 048
     Dates: end: 20081022
  3. COAPROVEL (COAPROVEL - HYDROCHLOROTHIAZIDE+IRBESARTAN) (NOT SPECIFIED) [Suspect]
     Indication: DRUG USE FOR UNKNOWN INDICATION
     Dosage: 300 MG QD ORAL
     Route: 048
     Dates: end: 20081022
  4. ALDACTONE [Suspect]
     Indication: DRUG USE FOR UNKNOWN INDICATION
     Dosage: 75 MG QD ORAL
     Route: 048
     Dates: end: 20081022
  5. SMECTA [Concomitant]

REACTIONS (13)
  - BRADYCARDIA [None]
  - DIARRHOEA [None]
  - HAEMODYNAMIC INSTABILITY [None]
  - HYPERKALAEMIA [None]
  - HYPONATRAEMIA [None]
  - MULTI-ORGAN FAILURE [None]
  - NEUROLOGICAL DECOMPENSATION [None]
  - NODAL RHYTHM [None]
  - RENAL FAILURE ACUTE [None]
  - RESPIRATORY DISORDER [None]
  - SEPSIS [None]
  - SINOATRIAL BLOCK [None]
  - TOXIC SHOCK SYNDROME [None]
